FAERS Safety Report 11850429 (Version 1)
Quarter: 2015Q4

REPORT INFORMATION
  Report Type: Spontaneous
  Country: US (occurrence: US)
  Receive Date: 20151218
  Receipt Date: 20151218
  Transmission Date: 20160305
  Serious: No
  Sender: FDA-Public Use
  Company Number: US-JNJFOC-20151110835

PATIENT
  Age: 30 Month
  Sex: Female
  Weight: 12.7 kg

DRUGS (3)
  1. CHILDRENS MOTRIN [Suspect]
     Active Substance: IBUPROFEN
     Indication: ABDOMINAL PAIN UPPER
     Dosage: 1 TEASPOON, 4 TIMES
     Route: 048
     Dates: start: 20151107, end: 20151108
  2. NEOCATE [Concomitant]
     Indication: NUTRITIONAL SUPPLEMENTATION
     Dosage: 1000 CALORIES DAILY
     Route: 050
  3. CHILDRENS MOTRIN [Suspect]
     Active Substance: IBUPROFEN
     Indication: PAINFUL DEFAECATION
     Dosage: 1 TEASPOON, 4 TIMES
     Route: 048
     Dates: start: 20151107, end: 20151108

REACTIONS (4)
  - Overdose [Unknown]
  - Product lot number issue [Unknown]
  - Drug ineffective for unapproved indication [Unknown]
  - Product use issue [Unknown]

NARRATIVE: CASE EVENT DATE: 20151107
